FAERS Safety Report 7095803 (Version 2)
Quarter: 2014Q2

REPORT INFORMATION
  Report Type: Spontaneous
  Country: US (occurrence: None)
  Receive Date: 20090817
  Receipt Date: 20140512
  Transmission Date: 20141212
  Serious: Yes (Other)
  Sender: FDA-Public Use
  Company Number: 2009S1006587

PATIENT
  Age: 44 Year
  Sex: Female

DRUGS (12)
  1. EZ PREP (EZ PREP) (75 MILLILITRE (S), ORAL SOLUTION) [Suspect]
     Indication: COLONOSCOPY
     Route: 048
     Dates: start: 20070717, end: 20070718
  2. LISINOPRIL (LISINOPRIL) [Concomitant]
  3. ZOCOR (SIMVASTATIN) [Concomitant]
  4. LEVOTHYROXINE (LEVOTHYROXINE) [Concomitant]
  5. HYDROCHLOROTHIAZIDE (HYDROCHLOROTHIAZIDE) [Concomitant]
  6. LASIX (FUROSEMIDE) [Concomitant]
  7. ALBUTEROL (SALBUTAMOL) [Concomitant]
  8. METFORMIN ER (METFORMIN) [Concomitant]
  9. ASPIRIN (ACETYLSALICYLIC ACID) [Concomitant]
  10. MULTIVITAMIN(ERGOCALCIFEROL, ASCORBIC ACID, PYRIDOXINE HYDROCHLORIDE, THIAMINE HYDROCHLORIDE, RETINOL, RIBOFLAVIN, NICOTINAMIDE, CALCIUM PANTOTHENATE) [Concomitant]
  11. HUMALOG (INSULIN LISPRO) [Concomitant]
  12. ASMANEX (MOMETASONE FUROATE) [Concomitant]

REACTIONS (15)
  - Renal failure acute [None]
  - Anaemia of chronic disease [None]
  - Decreased appetite [None]
  - Nausea [None]
  - Pyrexia [None]
  - Hypertension [None]
  - Pulmonary function test decreased [None]
  - Hypoglycaemia [None]
  - Weight increased [None]
  - Fatigue [None]
  - Myalgia [None]
  - Ingrowing nail [None]
  - Hyperkeratosis [None]
  - Cough [None]
  - Renal failure chronic [None]
